FAERS Safety Report 6696650-2 (Version None)
Quarter: 2010Q2

REPORT INFORMATION
  Report Type: 
  Country: None (occurrence: None)
  Receive Date: 20100426
  Receipt Date: 20100415
  Transmission Date: 20101027
  Serious: Yes (Life-Threatening, Hospitalization, Other)
  Sender: FDA-Public Use
  Company Number: BR-BAYER-201013668LA

PATIENT
  Age: 44 Year
  Sex: Male
  Weight: 70 kg

DRUGS (1)
  1. ULTRAVIST 300 [Suspect]
     Indication: SPINAL MYELOGRAM
     Dosage: TOTAL DAILY DOSE: 10 ML
     Route: 037
     Dates: start: 20100414

REACTIONS (3)
  - COMA [None]
  - CONVULSION [None]
  - MENINGITIS CHEMICAL [None]
